FAERS Safety Report 6402125-8 (Version None)
Quarter: 2009Q4

REPORT INFORMATION
  Report Type: 
  Country: None (occurrence: None)
  Receive Date: 20091014
  Receipt Date: 20091014
  Transmission Date: 20100525
  Serious: No
  Sender: FDA-Public Use
  Company Number: None

PATIENT
  Age: 68 Year
  Sex: Female
  Weight: 86.1834 kg

DRUGS (1)
  1. BYETTA [Suspect]
     Indication: BLOOD GLUCOSE INCREASED
     Dosage: 1 INJECTION TWICE A DAY TWICE A DAY
     Dates: start: 20070801, end: 20090801

REACTIONS (2)
  - ABDOMINAL PAIN UPPER [None]
  - NAUSEA [None]
